FAERS Safety Report 7578844-7 (Version None)
Quarter: 2011Q2

REPORT INFORMATION
  Report Type: 
  Country: None (occurrence: None)
  Receive Date: 20110628
  Receipt Date: 20110622
  Transmission Date: 20111010
  Serious: Yes (Death, Other)
  Sender: FDA-Public Use
  Company Number: JP-PFIZER INC-2011078659

PATIENT
  Age: 61 Year
  Sex: Female

DRUGS (1)
  1. SUTENT [Suspect]
     Indication: RENAL CANCER
     Dosage: 50 MG, 1X/DAY
     Route: 048
     Dates: start: 20110314, end: 20110328

REACTIONS (6)
  - TUMOUR LYSIS SYNDROME [None]
  - PLEURAL EFFUSION [None]
  - RENAL CELL CARCINOMA [None]
  - DIARRHOEA [None]
  - GENITAL RASH [None]
  - DISEASE PROGRESSION [None]
